FAERS Safety Report 18794042 (Version 1)
Quarter: 2021Q1

REPORT INFORMATION
  Report Type: Spontaneous
  Country: US (occurrence: US)
  Receive Date: 20210126
  Receipt Date: 20210126
  Transmission Date: 20210419
  Serious: Yes (Hospitalization)
  Sender: FDA-Public Use
  Company Number: None

PATIENT
  Age: 40 Year
  Sex: Female
  Weight: 82.6 kg

DRUGS (1)
  1. PEGFILGRASTIM?CBQV 6MG/0.6ML ML SOSY [Suspect]
     Active Substance: PEGFILGRASTIM-CBQV
     Indication: BREAST CANCER FEMALE
     Route: 058
     Dates: start: 20210108, end: 20210108

REACTIONS (2)
  - Neutropenia [None]
  - Colitis [None]

NARRATIVE: CASE EVENT DATE: 20210114
